FAERS Safety Report 24738814 (Version 1)
Quarter: 2024Q4

REPORT INFORMATION
  Report Type: Report from Study
  Country: IT (occurrence: IT)
  Receive Date: 20241216
  Receipt Date: 20241216
  Transmission Date: 20250114
  Serious: Yes (Other)
  Sender: BAXTER
  Company Number: None

PATIENT
  Age: 11 Year
  Sex: Female

DRUGS (2)
  1. IFOSFAMIDE [Suspect]
     Active Substance: IFOSFAMIDE
     Indication: Osteosarcoma metastatic
     Dosage: 1100 MG
     Route: 041
     Dates: start: 20240403, end: 20240415
  2. MESNA [Suspect]
     Active Substance: MESNA
     Indication: Osteosarcoma metastatic
     Dosage: 1100 MG; SOLUTION FOR INFUSION
     Route: 041
     Dates: start: 20240403, end: 20240415

REACTIONS (1)
  - Cystitis haemorrhagic [Recovered/Resolved]

NARRATIVE: CASE EVENT DATE: 20240413
